FAERS Safety Report 23367566 (Version 12)
Quarter: 2025Q1

REPORT INFORMATION
  Report Type: Spontaneous
  Country: US (occurrence: US)
  Receive Date: 20240104
  Receipt Date: 20250218
  Transmission Date: 20250408
  Serious: No
  Sender: PFIZER
  Company Number: US-PFIZER INC-PV202300125739

PATIENT
  Age: 74 Year
  Sex: Female
  Weight: 77.11 kg

DRUGS (12)
  1. IBRANCE [Suspect]
     Active Substance: PALBOCICLIB
     Indication: Breast cancer metastatic
     Route: 048
     Dates: start: 20230706
  2. IBRANCE [Suspect]
     Active Substance: PALBOCICLIB
     Route: 048
  3. IBRANCE [Suspect]
     Active Substance: PALBOCICLIB
     Route: 048
     Dates: start: 20240122
  4. CALCIUM [Concomitant]
     Active Substance: CALCIUM
     Dates: start: 2023
  5. CRESTOR [Concomitant]
     Active Substance: ROSUVASTATIN CALCIUM
     Dates: start: 2005
  6. LETROZOLE [Concomitant]
     Active Substance: LETROZOLE
     Dosage: 2.5 MG, 1X/DAY
     Dates: start: 202307
  7. MAGNESIUM [Concomitant]
     Active Substance: MAGNESIUM
     Dates: start: 2021
  8. VITAMIN D NOS [Concomitant]
     Active Substance: CHOLECALCIFEROL\ERGOCALCIFEROL
     Dates: start: 2020
  9. VITAMIN C [Concomitant]
     Active Substance: ASCORBIC ACID
     Dates: start: 2021
  10. VITAMIN B [Concomitant]
     Active Substance: VITAMIN B
     Dates: start: 2021
  11. VALSARTAN [Concomitant]
     Active Substance: VALSARTAN
     Dates: start: 2021
  12. ZETIA [Concomitant]
     Active Substance: EZETIMIBE
     Dates: start: 2005

REACTIONS (4)
  - Neoplasm progression [Unknown]
  - COVID-19 [Recovered/Resolved]
  - Decreased immune responsiveness [Unknown]
  - Off label use [Unknown]

NARRATIVE: CASE EVENT DATE: 20230101
